FAERS Safety Report 4867888-1 (Version None)
Quarter: 2005Q4

REPORT INFORMATION
  Report Type: 
  Country: None (occurrence: None)
  Receive Date: 20051227
  Receipt Date: 20051216
  Transmission Date: 20060501
  Serious: Yes (Other)
  Sender: FDA-Public Use
  Company Number: GXKR2005JP02176

PATIENT
  Sex: 0

DRUGS (1)
  1. RIFAMPICIN [Suspect]
     Dosage: ORAL
     Route: 048

REACTIONS (1)
  - PANCREATITIS [None]
